FAERS Safety Report 5285205-2 (Version None)
Quarter: 2007Q2

REPORT INFORMATION
  Report Type: 
  Country: None (occurrence: None)
  Receive Date: 20070403
  Receipt Date: 20070322
  Transmission Date: 20071010
  Serious: Yes (Hospitalization, Other)
  Sender: FDA-Public Use
  Company Number: BR-PFIZER INC-2007019705

PATIENT
  Sex: Female

DRUGS (9)
  1. LIPITOR [Suspect]
     Indication: BLOOD CHOLESTEROL INCREASED
     Route: 048
  2. LIPITOR [Suspect]
     Indication: DYSLIPIDAEMIA
  3. CALTRATE [Concomitant]
     Route: 048
  4. PROPAFENONE HCL [Concomitant]
     Route: 048
  5. HIGROTON [Concomitant]
     Route: 048
  6. CHONDROITIN/GLUCOSAMINE [Concomitant]
     Route: 048
  7. EUTHYROX [Concomitant]
     Indication: HORMONE REPLACEMENT THERAPY
     Route: 048
  8. FOSAMAX [Concomitant]
     Route: 048
  9. LORAZEPAM [Concomitant]
     Route: 048

REACTIONS (4)
  - BREAST CANCER [None]
  - BREAST MASS [None]
  - HYPERTENSION [None]
  - TACHYCARDIA [None]
